FAERS Safety Report 8715514 (Version 5)
Quarter: 2017Q4

REPORT INFORMATION
  Report Type: Report from Study
  Country: BR (occurrence: BR)
  Receive Date: 20120809
  Receipt Date: 20171206
  Transmission Date: 20180321
  Serious: Yes (Other)
  Sender: FDA-Public Use
  Company Number: BR-ROCHE-1099113

PATIENT
  Sex: Female
  Weight: 80 kg

DRUGS (12)
  1. ERITREX [Concomitant]
     Route: 042
  2. PROTOS (BRAZIL) [Concomitant]
     Active Substance: STRONTIUM RANELATE
  3. MABTHERA [Suspect]
     Active Substance: RITUXIMAB
     Route: 042
     Dates: start: 20140115
  4. PANTOPRAZOLE [Concomitant]
     Active Substance: PANTOPRAZOLE
     Indication: GASTRIC DISORDER
     Route: 065
  5. PARACETAMOL [Concomitant]
     Active Substance: ACETAMINOPHEN
     Indication: ARTHRALGIA
  6. MABTHERA [Suspect]
     Active Substance: RITUXIMAB
     Indication: DERMATOMYOSITIS
     Route: 042
     Dates: start: 20120719
  7. MABTHERA [Suspect]
     Active Substance: RITUXIMAB
     Indication: RHEUMATOID ARTHRITIS
     Dosage: LATEST INFUSION: 23/SEP/2015
     Route: 042
     Dates: start: 20130815
  8. MABTHERA [Suspect]
     Active Substance: RITUXIMAB
     Route: 042
  9. MABTHERA [Suspect]
     Active Substance: RITUXIMAB
     Route: 042
     Dates: start: 20161109
  10. PONDERA [Concomitant]
     Active Substance: PAROXETINE HYDROCHLORIDE
  11. PURAN [Concomitant]
     Active Substance: LEVOTHYROXINE SODIUM
     Indication: THYROID DISORDER
     Route: 065
  12. IMURAN [Concomitant]
     Active Substance: AZATHIOPRINE
     Indication: ILL-DEFINED DISORDER
     Route: 065

REACTIONS (11)
  - Polymyositis [Not Recovered/Not Resolved]
  - Gait disturbance [Not Recovered/Not Resolved]
  - Thyroid disorder [Not Recovered/Not Resolved]
  - Pain [Recovering/Resolving]
  - Gastric disorder [Not Recovered/Not Resolved]
  - Lower limb fracture [Recovered/Resolved]
  - Rheumatoid arthritis [Recovering/Resolving]
  - Drug hypersensitivity [Unknown]
  - Fall [Unknown]
  - Asthenia [Not Recovered/Not Resolved]
  - Limb injury [Recovering/Resolving]
